FAERS Safety Report 9105308 (Version 1)
Quarter: 2013Q1

REPORT INFORMATION
  Report Type: Report from Study
  Country: US (occurrence: US)
  Receive Date: 20130220
  Receipt Date: 20130220
  Transmission Date: 20140127
  Serious: Yes (Hospitalization)
  Sender: FDA-Public Use
  Company Number: US-BAYER-2013-015024

PATIENT
  Age: 56 Year
  Sex: Male

DRUGS (2)
  1. NEXAVAR [Suspect]
     Indication: BRONCHIAL CARCINOMA
     Dosage: 200 MG, 1 TABLET DAILY
     Route: 048
     Dates: start: 20130129
  2. NEXAVAR [Suspect]
     Indication: LUNG NEOPLASM MALIGNANT

REACTIONS (5)
  - Convulsion [Recovered/Resolved]
  - Feeling abnormal [None]
  - Abnormal dreams [Not Recovered/Not Resolved]
  - Nightmare [Not Recovered/Not Resolved]
  - Off label use [None]
